FAERS Safety Report 5330354-3 (Version None)
Quarter: 2007Q2

REPORT INFORMATION
  Report Type: 
  Country: None (occurrence: None)
  Receive Date: 20070521
  Receipt Date: 20070509
  Transmission Date: 20071010
  Serious: Yes (Disabling, Other)
  Sender: FDA-Public Use
  Company Number: FR-PFIZER INC-2007001661

PATIENT
  Sex: Female

DRUGS (14)
  1. VFEND [Suspect]
     Indication: ASPERGILLOSIS
  2. CANCIDAS [Concomitant]
     Route: 042
     Dates: start: 20061215, end: 20070105
  3. DRUG, UNSPECIFIED [Concomitant]
  4. AMBISOME [Concomitant]
     Route: 042
     Dates: start: 20061214, end: 20061217
  5. TOBRAMYCIN [Concomitant]
     Route: 048
     Dates: start: 20061213, end: 20061222
  6. PARACETAMOL [Concomitant]
     Route: 042
     Dates: start: 20061214, end: 20061224
  7. LACTITOL [Concomitant]
     Route: 048
     Dates: start: 20061215, end: 20061222
  8. FILGRASTIM [Concomitant]
     Route: 042
     Dates: start: 20061216, end: 20061222
  9. CIPROFLOXACIN [Concomitant]
     Route: 042
     Dates: start: 20061217, end: 20061222
  10. PANTOPRAZOLE SODIUM [Concomitant]
     Route: 042
     Dates: start: 20061219, end: 20061229
  11. CHLORPROMAZINE HCL [Concomitant]
     Route: 042
     Dates: start: 20061219, end: 20061223
  12. TIENAM [Concomitant]
     Route: 042
     Dates: start: 20061219, end: 20061228
  13. NYSTATINE [Concomitant]
     Route: 048
     Dates: start: 20061219, end: 20061228
  14. MORPHINE SULFATE [Concomitant]
     Route: 042
     Dates: start: 20061219, end: 20061228

REACTIONS (1)
  - CHEILITIS [None]
